FAERS Safety Report 25894803 (Version 1)
Quarter: 2025Q4

REPORT INFORMATION
  Report Type: Report from Study
  Country: US (occurrence: US)
  Receive Date: 20251008
  Receipt Date: 20251008
  Transmission Date: 20260117
  Serious: Yes (Other)
  Sender: ACCORD
  Company Number: US-SUMITOMO PHARMA SWITZERLAND GMBH-2025SPA005181

PATIENT
  Age: 83 Year
  Sex: Male

DRUGS (14)
  1. LISINOPRIL [Suspect]
     Active Substance: LISINOPRIL
     Indication: Product used for unknown indication
     Dosage: UNK
  2. RELUGOLIX [Suspect]
     Active Substance: RELUGOLIX
     Indication: Prostate cancer
     Dosage: 360 MG, SINGLE
     Route: 048
     Dates: start: 2023, end: 2023
  3. ABIRATERONE [Concomitant]
     Active Substance: ABIRATERONE
  4. ASPIRIN [Concomitant]
     Active Substance: ASPIRIN
  5. ATORVASTATIN [Concomitant]
     Active Substance: ATORVASTATIN
  6. CALCIUM [Concomitant]
     Active Substance: CALCIUM
     Dosage: CALCIUM 600
  7. GLUCOSAMINE [Concomitant]
     Active Substance: GLUCOSAMINE
  8. RUXOLITINIB [Concomitant]
     Active Substance: RUXOLITINIB
     Dosage: 10 MG
  9. OMEPRAZOLE [Concomitant]
     Active Substance: OMEPRAZOLE
  10. POTASSIUM [Concomitant]
     Active Substance: POTASSIUM
  11. SILDENAFIL [Concomitant]
     Active Substance: SILDENAFIL
  12. VALSARTAN [Concomitant]
     Active Substance: VALSARTAN
  13. XARELTO [Concomitant]
     Active Substance: RIVAROXABAN
     Dosage: UNK
  14. RELUGOLIX [Suspect]
     Active Substance: RELUGOLIX
     Indication: Prostate cancer
     Dosage: 120 MG, QD
     Route: 048
     Dates: start: 2023

REACTIONS (6)
  - Pulmonary embolism [Unknown]
  - Blister [Unknown]
  - Rash pruritic [Unknown]
  - Cough [Recovered/Resolved]
  - Mood swings [Unknown]
  - Fatigue [Unknown]
